FAERS Safety Report 8443791-5 (Version None)
Quarter: 2012Q2

REPORT INFORMATION
  Report Type: 
  Country: None (occurrence: None)
  Receive Date: 20120618
  Receipt Date: 20120607
  Transmission Date: 20120825
  Serious: Yes (Hospitalization)
  Sender: FDA-Public Use
  Company Number: GR-US-EMD SERONO, INC.-7134123

PATIENT
  Age: 15 Year
  Sex: Female

DRUGS (4)
  1. EUTHYROX [Concomitant]
     Route: 048
  2. PROCEF [Concomitant]
     Indication: HYPOTHYROIDISM
     Route: 048
     Dates: start: 20120501, end: 20120501
  3. EUTHYROX [Concomitant]
     Indication: HYPOTHYROIDISM
     Route: 048
  4. SAIZEN [Suspect]
     Indication: PRODUCT USED FOR UNKNOWN INDICATION
     Dates: start: 20091001

REACTIONS (1)
  - GRANULOMA [None]
